FAERS Safety Report 6656684-0 (Version None)
Quarter: 2010Q1

REPORT INFORMATION
  Report Type: 
  Country: None (occurrence: None)
  Receive Date: 20100329
  Receipt Date: 20100315
  Transmission Date: 20100710
  Serious: Yes (Hospitalization)
  Sender: FDA-Public Use
  Company Number: NL-MEDIMMUNE-MEDI-0010842

PATIENT
  Sex: Female

DRUGS (2)
  1. SYNAGIS [Suspect]
     Route: 030
     Dates: start: 20090902, end: 20100215
  2. SYNAGIS [Suspect]
     Route: 030
     Dates: end: 20100315

REACTIONS (4)
  - EXANTHEMA SUBITUM [None]
  - PYREXIA [None]
  - RASH [None]
  - VOMITING [None]
